FAERS Safety Report 7718602-3 (Version None)
Quarter: 2011Q3

REPORT INFORMATION
  Report Type: 
  Country: None (occurrence: None)
  Receive Date: 20110830
  Receipt Date: 20100614
  Transmission Date: 20111222
  Serious: No
  Sender: FDA-Public Use
  Company Number: US-BAYER-201026581NA

PATIENT
  Age: 26 Year
  Sex: Female

DRUGS (2)
  1. MIRENA [Suspect]
     Indication: CONTRACEPTION
     Dosage: 20 ?G/D, CONT
     Route: 015
     Dates: start: 20081201, end: 20100525
  2. MIRENA [Suspect]
     Indication: ENDOMETRIOSIS

REACTIONS (4)
  - VAGINAL HAEMORRHAGE [None]
  - ACNE [None]
  - ABDOMINAL PAIN LOWER [None]
  - AMENORRHOEA [None]
